FAERS Safety Report 4884959-4 (Version None)
Quarter: 2005Q4

REPORT INFORMATION
  Report Type: 
  Country: None (occurrence: None)
  Receive Date: 20051201
  Receipt Date: 20050915
  Transmission Date: 20060501
  Serious: No
  Sender: FDA-Public Use
  Company Number: 2005PV002127

PATIENT
  Age: 64 Year
  Sex: Female
  Weight: 115.6672 kg

DRUGS (12)
  1. BYETTA [Suspect]
     Indication: DIABETES MELLITUS NON-INSULIN-DEPENDENT
     Dosage: 5 MCG; QD; SC
     Route: 058
     Dates: start: 20050914
  2. LANTUS [Concomitant]
  3. BUSPAR [Concomitant]
  4. HUMALOG [Concomitant]
  5. IMIPRAMINE [Concomitant]
  6. SYNTHROID [Concomitant]
  7. NEURONTIN [Concomitant]
  8. LEXAPRO [Concomitant]
  9. ACEON [Concomitant]
  10. ASPIRIN [Concomitant]
  11. PROTONIX [Concomitant]
  12. HYDROCHLOROTHIAZIDE [Concomitant]

REACTIONS (10)
  - ANXIETY [None]
  - DECREASED APPETITE [None]
  - DYSKINESIA [None]
  - EARLY SATIETY [None]
  - FEELING HOT [None]
  - HEADACHE [None]
  - HUNGER [None]
  - INCOHERENT [None]
  - PARAESTHESIA [None]
  - TREMOR [None]
